FAERS Safety Report 4407101-2 (Version None)
Quarter: 2004Q3

REPORT INFORMATION
  Report Type: 
  Country: None (occurrence: None)
  Receive Date: 20040721
  Receipt Date: 20040707
  Transmission Date: 20050211
  Serious: Yes (Death, Disabling)
  Sender: FDA-Public Use
  Company Number: USA-2004-0014924

PATIENT
  Age: 79 Year
  Sex: Male

DRUGS (3)
  1. OXYCONTIN [Suspect]
     Indication: PAIN
     Dates: end: 20040401
  2. AMBIEN [Concomitant]
  3. ENALAPRIL MALEATE [Concomitant]

REACTIONS (3)
  - DYSPHAGIA [None]
  - FAILURE TO THRIVE [None]
  - GENERAL PHYSICAL HEALTH DETERIORATION [None]
